FAERS Safety Report 7379763-1 (Version None)
Quarter: 2011Q1

REPORT INFORMATION
  Report Type: 
  Country: None (occurrence: None)
  Receive Date: 20110318
  Receipt Date: 20110315
  Transmission Date: 20110831
  Serious: Yes (Death, Hospitalization)
  Sender: FDA-Public Use
  Company Number: SP03553

PATIENT
  Age: 55 Year
  Sex: Male
  Weight: 88.4514 kg

DRUGS (4)
  1. MOVIPREP [Suspect]
     Indication: BOWEL PREPARATION
     Dosage: ORAL
     Route: 048
     Dates: start: 20110308, end: 20110308
  2. HZYAAR (TABLETS) [Concomitant]
  3. POTASSIUM CHLORIDE [Concomitant]
  4. ASPIRIN [Concomitant]

REACTIONS (3)
  - CONVULSION [None]
  - BLOOD POTASSIUM DECREASED [None]
  - MENTAL STATUS CHANGES [None]
